FAERS Safety Report 4911517-5 (Version None)
Quarter: 2006Q1

REPORT INFORMATION
  Report Type: 
  Country: None (occurrence: None)
  Receive Date: 20060214
  Receipt Date: 20050810
  Transmission Date: 20060701
  Serious: Yes (Hospitalization, Other)
  Sender: FDA-Public Use
  Company Number: US-MERCK-0508USA01986

PATIENT
  Age: 22 Year
  Sex: Female
  Weight: 73 kg

DRUGS (1)
  1. VIOXX [Suspect]
     Indication: PAIN MANAGEMENT
     Route: 048
     Dates: start: 20020101, end: 20020801

REACTIONS (7)
  - ARTHROPATHY [None]
  - DEEP VEIN THROMBOSIS [None]
  - DEPRESSION [None]
  - INJURY [None]
  - LIGAMENT OPERATION [None]
  - MYOCARDIAL INFARCTION [None]
  - PULMONARY EMBOLISM [None]
